FAERS Safety Report 6034669-5 (Version None)
Quarter: 2009Q1

REPORT INFORMATION
  Report Type: 
  Country: None (occurrence: None)
  Receive Date: 20090112
  Receipt Date: 20090105
  Transmission Date: 20090719
  Serious: Yes (Other)
  Sender: FDA-Public Use
  Company Number: TW-JNJCH-2009000459

PATIENT
  Age: 28 Year
  Sex: Male

DRUGS (1)
  1. REGAINE 5% [Suspect]
     Indication: ALOPECIA
     Dosage: TEXT:UNSPECIFIED
     Route: 061

REACTIONS (2)
  - APPLICATION SITE PRURITUS [None]
  - SKIN INJURY [None]
